FAERS Safety Report 7218190-4 (Version None)
Quarter: 2011Q1

REPORT INFORMATION
  Report Type: 
  Country: None (occurrence: None)
  Receive Date: 20110110
  Receipt Date: 20110103
  Transmission Date: 20110831
  Serious: Yes (Hospitalization, Other)
  Sender: FDA-Public Use
  Company Number: US-PFIZER INC-2011000911

PATIENT
  Sex: Female

DRUGS (18)
  1. CHANTIX [Suspect]
     Indication: SMOKING CESSATION THERAPY
     Dosage: UNK
     Route: 048
  2. FEXOFENADINE [Concomitant]
     Indication: HYPERSENSITIVITY
     Dosage: 60 MG, 1X/DAY
     Route: 048
  3. COMBIVENT [Concomitant]
     Indication: ASTHMA
     Dosage: UNK
  4. ADVAIR [Concomitant]
     Indication: ASTHMA
     Dosage: 115/21
  5. ESTROGENS [Concomitant]
     Indication: MENOPAUSE
     Dosage: UNK
  6. SOLU-MEDROL [Suspect]
     Indication: PNEUMONIA
     Dosage: UNK
     Route: 042
  7. LEXAPRO [Concomitant]
     Indication: DEPRESSION
     Dosage: 30 MG, 1X/DAY
     Route: 048
  8. TOPIRAMATE [Concomitant]
     Indication: PAIN
     Dosage: 25 MG, 3X/DAY
     Route: 048
  9. PRAVASTATIN SODIUM [Concomitant]
     Indication: BLOOD CHOLESTEROL INCREASED
     Dosage: 80 MG, 1X/DAY
     Route: 048
  10. OXYCODONE [Concomitant]
     Dosage: 25 MG, 4X/DAY
  11. CLONAZEPAM [Concomitant]
     Indication: PANIC ATTACK
     Dosage: 1 MG, 3X/DAY
     Route: 048
  12. FENTANYL [Concomitant]
     Indication: PAIN
     Dosage: 75 MG, EVERY 3 DAYS
     Route: 062
  13. OXYGEN [Concomitant]
     Dosage: UNK
  14. PREDNISONE [Suspect]
     Indication: PNEUMONIA
     Dosage: UNK
     Route: 042
  15. NEXIUM [Concomitant]
     Indication: GASTRIC DISORDER
     Dosage: 80 MG, 2X/DAY
     Route: 048
  16. MONTELUKAST SODIUM [Concomitant]
     Indication: CHRONIC OBSTRUCTIVE PULMONARY DISEASE
     Dosage: 10 MG, 1X/DAY
  17. SUCRALFATE [Concomitant]
     Indication: DYSPEPSIA
     Dosage: UNK
     Route: 048
  18. FEXOFENADINE [Concomitant]
     Indication: ASTHMA

REACTIONS (5)
  - INTERVERTEBRAL DISC DEGENERATION [None]
  - LUNG DISORDER [None]
  - SUICIDAL IDEATION [None]
  - DEPRESSION [None]
  - AMNESIA [None]
